FAERS Safety Report 6110318-2 (Version None)
Quarter: 2009Q1

REPORT INFORMATION
  Report Type: 
  Country: None (occurrence: None)
  Receive Date: 20090310
  Receipt Date: 20090226
  Transmission Date: 20090719
  Serious: Yes (Hospitalization)
  Sender: FDA-Public Use
  Company Number: FR-PFIZER INC-2009177082

PATIENT

DRUGS (7)
  1. VFEND [Suspect]
     Dates: start: 20090107, end: 20090123
  2. VINCRISTINE SULFATE [Suspect]
     Indication: ACUTE LYMPHOCYTIC LEUKAEMIA
     Dosage: UNK
     Dates: start: 20081027, end: 20090109
  3. ITRACONAZOLE [Concomitant]
     Dates: start: 20081201
  4. DAUNORUBICIN [Concomitant]
     Dates: start: 20081027
  5. ASPARAGINASE [Concomitant]
     Dates: start: 20081027
  6. CLARITHROMYCIN [Concomitant]
     Dates: start: 20081219
  7. CASPOFUNGIN ACETATE [Concomitant]
     Dates: start: 20081210

REACTIONS (1)
  - ILEUS [None]
